FAERS Safety Report 15120784 (Version 2)
Quarter: 2018Q3

REPORT INFORMATION
  Report Type: Spontaneous
  Country: US (occurrence: US)
  Receive Date: 20180709
  Receipt Date: 20180809
  Transmission Date: 20181010
  Serious: No
  Sender: FDA-Public Use
  Company Number: US-SA-2018SA164213

PATIENT
  Age: 86 Year
  Sex: Female

DRUGS (1)
  1. LANTUS [Suspect]
     Active Substance: INSULIN GLARGINE
     Indication: BLOOD GLUCOSE ABNORMAL

REACTIONS (5)
  - Product container issue [Unknown]
  - Blood glucose increased [Unknown]
  - Angiopathy [Unknown]
  - Visual impairment [Unknown]
  - Eye disorder [Unknown]
